FAERS Safety Report 8353327-5 (Version None)
Quarter: 2012Q2

REPORT INFORMATION
  Report Type: 
  Country: None (occurrence: None)
  Receive Date: 20120511
  Receipt Date: 20120507
  Transmission Date: 20120825
  Serious: Yes (Hospitalization, Other)
  Sender: FDA-Public Use
  Company Number: PHHY2010CA76913

PATIENT
  Sex: Male

DRUGS (5)
  1. SANDOSTATIN LAR [Suspect]
     Dosage: 40 MG, ONCE A MONTH
     Route: 030
     Dates: end: 20120407
  2. SANDOSTATIN LAR [Suspect]
     Dosage: 30 MG, QMO
     Route: 030
  3. SANDOSTATIN LAR [Suspect]
     Indication: NEUROENDOCRINE CARCINOMA
     Dosage: 40 MG, QMO
     Route: 030
     Dates: start: 20101111
  4. SANDOSTATIN LAR [Suspect]
     Dosage: 30 MG, QMO
     Route: 030
  5. SANDOSTATIN LAR [Suspect]
     Dosage: 40 MG, EVERY 4 WEEKS
     Route: 030

REACTIONS (13)
  - WEIGHT INCREASED [None]
  - DYSPEPSIA [None]
  - BLOOD PRESSURE INCREASED [None]
  - GASTROINTESTINAL DISORDER POSTOPERATIVE [None]
  - DIARRHOEA [None]
  - BILE DUCT OBSTRUCTION [None]
  - GALLBLADDER PERFORATION [None]
  - INFECTION [None]
  - HAEMOGLOBIN DECREASED [None]
  - JAUNDICE [None]
  - MALAISE [None]
  - INJECTION SITE HAEMORRHAGE [None]
  - FLATULENCE [None]
